FAERS Safety Report 9396011 (Version 1)
Quarter: 2013Q3

REPORT INFORMATION
  Report Type: Spontaneous
  Country: US (occurrence: US)
  Receive Date: 20130711
  Receipt Date: 20130711
  Transmission Date: 20140515
  Serious: No
  Sender: FDA-Public Use
  Company Number: US-PFIZER INC-2013204212

PATIENT
  Age: 57 Year
  Sex: Female
  Weight: 67.12 kg

DRUGS (2)
  1. LYRICA [Suspect]
     Indication: FIBROMYALGIA
     Dosage: 150 MG, 2X/DAY
     Route: 048
     Dates: start: 2011
  2. BUPROPION [Concomitant]
     Dosage: 300 MG DAILY

REACTIONS (2)
  - Insomnia [Unknown]
  - Nausea [Unknown]
